FAERS Safety Report 4937644-4 (Version None)
Quarter: 2006Q1

REPORT INFORMATION
  Report Type: 
  Country: None (occurrence: None)
  Receive Date: 20060309
  Receipt Date: 20050921
  Transmission Date: 20060701
  Serious: Yes (Hospitalization, Disabling)
  Sender: FDA-Public Use
  Company Number: US-MERCK-0509USA03098

PATIENT
  Age: 63 Year
  Sex: Male
  Weight: 61 kg

DRUGS (4)
  1. VIOXX [Suspect]
     Indication: SHOULDER PAIN
     Route: 048
     Dates: start: 20010201, end: 20040801
  2. VIOXX [Suspect]
     Indication: ARTHRALGIA
     Route: 048
     Dates: start: 20010201, end: 20040801
  3. ASPIRIN [Concomitant]
     Route: 065
  4. PREVACID [Concomitant]
     Route: 065

REACTIONS (14)
  - ABDOMINAL PAIN [None]
  - ANXIETY [None]
  - BACK INJURY [None]
  - CAROTID ARTERY STENOSIS [None]
  - CEREBROVASCULAR ACCIDENT [None]
  - CORONARY ARTERY DISEASE [None]
  - HEADACHE [None]
  - HYPERSENSITIVITY [None]
  - MAJOR DEPRESSION [None]
  - NECK INJURY [None]
  - PAIN IN EXTREMITY [None]
  - RENAL ARTERY STENOSIS [None]
  - ROAD TRAFFIC ACCIDENT [None]
  - TRANSIENT ISCHAEMIC ATTACK [None]
